FAERS Safety Report 16264301 (Version 6)
Quarter: 2022Q4

REPORT INFORMATION
  Report Type: Other
  Country: CA (occurrence: None)
  Receive Date: 20190502
  Receipt Date: 20221130
  Transmission Date: 20230113
  Serious: No
  Sender: FDA-Public Use
  Company Number: CA-ROCHE-2311256

PATIENT
  Age: 38 Year
  Sex: Female

DRUGS (2)
  1. OCREVUS [Suspect]
     Active Substance: OCRELIZUMAB
     Indication: Relapsing-remitting multiple sclerosis
     Dosage: 300 MG AT DAY 0 AND 14, THEN 600 MG EVERY 6 MONTH, LIQUID?THERAPY START DATE: 19/APR/2019
     Route: 042
  2. CETIRIZINE HYDROCHLORIDE [Concomitant]
     Active Substance: CETIRIZINE HYDROCHLORIDE

REACTIONS (6)
  - Infusion related reaction [Recovered/Resolved]
  - Pyrexia [Recovering/Resolving]
  - Oral herpes [Recovered/Resolved]
  - Fatigue [Unknown]
  - Headache [Unknown]
  - Stress [Unknown]

NARRATIVE: CASE EVENT DATE: 20190401
